FAERS Safety Report 22387711 (Version 3)
Quarter: 2023Q2

REPORT INFORMATION
  Report Type: Report from Study
  Country: US (occurrence: US)
  Receive Date: 20230531
  Receipt Date: 20230628
  Transmission Date: 20230721
  Serious: Yes (Other)
  Sender: FDA-Public Use
  Company Number: US-BRISTOL-MYERS SQUIBB COMPANY-2023-064999

PATIENT
  Age: 95 Year
  Sex: Female
  Weight: 58.97 kg

DRUGS (2)
  1. ORENCIA [Suspect]
     Active Substance: ABATACEPT
     Indication: Rheumatoid arthritis
     Dosage: DOSE : 125MG;     FREQ : ONCE WEEKLY
     Route: 058
     Dates: start: 202301
  2. PREDNISONE [Concomitant]
     Active Substance: PREDNISONE
     Indication: Product used for unknown indication
     Dosage: 5 MG

REACTIONS (3)
  - Device deployment issue [Unknown]
  - Device leakage [Unknown]
  - Device safety feature issue [Unknown]
